FAERS Safety Report 6032730-2 (Version None)
Quarter: 2009Q1

REPORT INFORMATION
  Report Type: 
  Country: None (occurrence: None)
  Receive Date: 20090109
  Receipt Date: 20081229
  Transmission Date: 20090719
  Serious: Yes (Other)
  Sender: FDA-Public Use
  Company Number: US-PFIZER INC-2008033155

PATIENT
  Sex: Female
  Weight: 68 kg

DRUGS (10)
  1. XANAX [Suspect]
     Indication: INSOMNIA
     Route: 048
     Dates: start: 20061001, end: 20070121
  2. VICOPROFEN [Concomitant]
  3. TOPROL-XL [Concomitant]
  4. TRAZODONE HYDROCHLORIDE [Concomitant]
  5. EFFEXOR XR [Concomitant]
  6. KLONOPIN [Concomitant]
  7. PERCOCET [Concomitant]
  8. MAGNESIUM [Concomitant]
  9. CALCIUM [Concomitant]
  10. SEROQUEL [Concomitant]

REACTIONS (16)
  - ABNORMAL BEHAVIOUR [None]
  - ANOREXIA [None]
  - CARDIAC VALVE DISEASE [None]
  - CHRONIC FATIGUE SYNDROME [None]
  - CONVULSION [None]
  - DRUG DEPENDENCE [None]
  - DYSKINESIA [None]
  - EYE PAIN [None]
  - GAIT DISTURBANCE [None]
  - HEAD DISCOMFORT [None]
  - HEART RATE INCREASED [None]
  - HYPERTENSION [None]
  - MUSCLE TWITCHING [None]
  - PANIC ATTACK [None]
  - SENSORY DISTURBANCE [None]
  - WEIGHT DECREASED [None]
